FAERS Safety Report 22225146 (Version 2)
Quarter: 2023Q2

REPORT INFORMATION
  Report Type: Spontaneous
  Country: CA (occurrence: CA)
  Receive Date: 20230418
  Receipt Date: 20230424
  Transmission Date: 20230721
  Serious: No
  Sender: FDA-Public Use
  Company Number: CA-BAUSCH-BL-2023-006212

PATIENT
  Age: 39 Year
  Sex: Female

DRUGS (24)
  1. NABILONE [Suspect]
     Active Substance: NABILONE
     Indication: Procedural pain
     Dosage: 1 DOSE
     Route: 065
  2. BUPRENORPHINE [Concomitant]
     Active Substance: BUPRENORPHINE
     Indication: Drug use disorder
     Dosage: BUP-SL
     Route: 060
  3. BUPRENORPHINE [Concomitant]
     Active Substance: BUPRENORPHINE
     Dosage: TRANSITIONED TO BUP-XR
  4. GABAPENTIN [Concomitant]
     Active Substance: GABAPENTIN
     Indication: Alcohol use disorder
     Route: 065
  5. GABAPENTIN [Concomitant]
     Active Substance: GABAPENTIN
     Indication: Pain management
     Dosage: RESTARTED
     Route: 065
  6. GABAPENTIN [Concomitant]
     Active Substance: GABAPENTIN
     Dosage: INCREASED
     Route: 065
  7. HYDROMORPHONE [Concomitant]
     Active Substance: HYDROMORPHONE
     Indication: Pain management
     Dosage: HM IV-PCA
     Route: 042
  8. HYDROMORPHONE [Concomitant]
     Active Substance: HYDROMORPHONE
     Dosage: HYDROMORPHONE-CONTROLLED RELEASE [CR]
     Route: 048
  9. HYDROMORPHONE [Concomitant]
     Active Substance: HYDROMORPHONE
     Dosage: HYDROMORPHONE-IV, AS NEEDED (PRN) Q2H
     Route: 042
  10. HYDROMORPHONE [Concomitant]
     Active Substance: HYDROMORPHONE
     Dosage: HYDROMORPHONE-CR, INCREASED
  11. HYDROMORPHONE [Concomitant]
     Active Substance: HYDROMORPHONE
     Dosage: HM IV-PCA
     Route: 042
  12. HYDROMORPHONE [Concomitant]
     Active Substance: HYDROMORPHONE
     Dosage: HM IV-PCA, INCREASED
     Route: 042
  13. HYDROMORPHONE [Concomitant]
     Active Substance: HYDROMORPHONE
     Route: 048
  14. HYDROMORPHONE [Concomitant]
     Active Substance: HYDROMORPHONE
     Dosage: TRANSITIONED FROM HM-IV PCA TO HYDROMORPHONE-INSTANT-RELEASE (IR)
     Route: 048
  15. HYDROMORPHONE [Concomitant]
     Active Substance: HYDROMORPHONE
     Dosage: HYDROMORPHONE-IV
     Route: 042
  16. HYDROMORPHONE [Concomitant]
     Active Substance: HYDROMORPHONE
     Dosage: HM IV-PCA
     Route: 042
  17. HYDROMORPHONE [Concomitant]
     Active Substance: HYDROMORPHONE
     Dosage: HYDROMORPHONE-CR
  18. HYDROMORPHONE [Concomitant]
     Active Substance: HYDROMORPHONE
     Dosage: HYDROMORPHONE-IR, Q3H PRN
  19. ACETAMINOPHEN [Concomitant]
     Active Substance: ACETAMINOPHEN
     Indication: Pain management
  20. ROPIVACAINE [Concomitant]
     Active Substance: ROPIVACAINE
     Indication: Analgesic therapy
     Dosage: 20 CC
  21. ROPIVACAINE [Concomitant]
     Active Substance: ROPIVACAINE
     Dosage: 10 CC
  22. ROPIVACAINE [Concomitant]
     Active Substance: ROPIVACAINE
     Dosage: 5 CC
  23. KETOROLAC [Concomitant]
     Active Substance: KETOROLAC TROMETHAMINE
     Indication: Procedural pain
  24. KETOROLAC [Concomitant]
     Active Substance: KETOROLAC TROMETHAMINE
     Route: 042

REACTIONS (2)
  - Drug intolerance [Unknown]
  - Dysphoria [Unknown]
